FAERS Safety Report 5093606-0 (Version None)
Quarter: 2006Q3

REPORT INFORMATION
  Report Type: 
  Country: None (occurrence: None)
  Receive Date: 20060829
  Receipt Date: 20060816
  Transmission Date: 20061208
  Serious: Yes (Death)
  Sender: FDA-Public Use
  Company Number: S06-USA-03262-01

PATIENT
  Age: 48 Year
  Sex: Male

DRUGS (2)
  1. CAMPRAL [Suspect]
     Indication: ALCOHOLISM
     Dosage: 666 MG TID PO
     Route: 048
     Dates: end: 20060712
  2. MULTIPLE MEDICATIONS (NOS) [Concomitant]

REACTIONS (3)
  - INCORRECT DOSE ADMINISTERED [None]
  - PULMONARY HAEMORRHAGE [None]
  - PULMONARY OEDEMA [None]
